FAERS Safety Report 15134454 (Version 1)
Quarter: 2018Q3

REPORT INFORMATION
  Report Type: Spontaneous
  Country: US (occurrence: US)
  Receive Date: 20180615
  Receipt Date: 20180615
  Transmission Date: 20181010
  Serious: Yes (Hospitalization)
  Sender: FDA-Public Use
  Company Number: None

PATIENT
  Age: 68 Year
  Sex: Female
  Weight: 78.47 kg

DRUGS (14)
  1. POTASSIUM CHLORIDE. [Concomitant]
     Active Substance: POTASSIUM CHLORIDE
  2. CARVEDILOL. [Concomitant]
     Active Substance: CARVEDILOL
  3. SENNA [Concomitant]
     Active Substance: SENNA LEAF\SENNOSIDES\SENNOSIDES A AND B
  4. METHOTREXATE. [Suspect]
     Active Substance: METHOTREXATE
     Dates: end: 20180524
  5. ACYCLOVIR. [Concomitant]
     Active Substance: ACYCLOVIR
  6. ONDANSETRON [Concomitant]
     Active Substance: ONDANSETRON
  7. ETOPOSIDE (VP?16) [Suspect]
     Active Substance: ETOPOSIDE
     Dates: end: 20180528
  8. LINZOLID [Concomitant]
  9. LORAZEPAM. [Concomitant]
     Active Substance: LORAZEPAM
  10. OLANZAPINE. [Concomitant]
     Active Substance: OLANZAPINE
  11. PANTOPRAZOLE [Concomitant]
     Active Substance: PANTOPRAZOLE
  12. CYTARABINE. [Suspect]
     Active Substance: CYTARABINE
     Dates: end: 20180528
  13. DAPSONE. [Concomitant]
     Active Substance: DAPSONE
  14. FLUCONAZOLE. [Concomitant]
     Active Substance: FLUCONAZOLE

REACTIONS (13)
  - Malaise [None]
  - Diarrhoea [None]
  - Body temperature increased [None]
  - Hypophagia [None]
  - Dizziness postural [None]
  - Colitis [None]
  - Vomiting [None]
  - Clostridium test positive [None]
  - Nausea [None]
  - Abdominal pain lower [None]
  - Enteritis [None]
  - Asthenia [None]
  - Abdominal discomfort [None]

NARRATIVE: CASE EVENT DATE: 20180604
